FAERS Safety Report 4766166-9 (Version None)
Quarter: 2005Q3

REPORT INFORMATION
  Report Type: 
  Country: None (occurrence: None)
  Receive Date: 20050912
  Receipt Date: 20050427
  Transmission Date: 20060218
  Serious: Yes (Hospitalization, Disabling)
  Sender: FDA-Public Use
  Company Number: US-MERCK-0505USA00253

PATIENT
  Age: 55 Year
  Sex: Female
  Weight: 127 kg

DRUGS (3)
  1. VIOXX [Suspect]
     Indication: ARTHRITIS
     Route: 048
     Dates: start: 20010101, end: 20040501
  2. VIOXX [Suspect]
     Route: 048
     Dates: start: 20010101, end: 20040501
  3. TYLENOL [Concomitant]
     Route: 065

REACTIONS (10)
  - BACK PAIN [None]
  - DIABETES MELLITUS [None]
  - FATIGUE [None]
  - GASTROOESOPHAGEAL REFLUX DISEASE [None]
  - HYPERTENSION [None]
  - MYOCARDIAL INFARCTION [None]
  - NEUROPATHY [None]
  - OEDEMA [None]
  - PANIC ATTACK [None]
  - TRANSIENT ISCHAEMIC ATTACK [None]
